FAERS Safety Report 10672555 (Version 1)
Quarter: 2014Q4

REPORT INFORMATION
  Report Type: Spontaneous
  Country: US (occurrence: US)
  Receive Date: 20141223
  Receipt Date: 20141223
  Transmission Date: 20150529
  Serious: Yes (Hospitalization)
  Sender: FDA-Public Use
  Company Number: PHHY2014US163478

PATIENT
  Age: 15 Year
  Sex: Female

DRUGS (2)
  1. BISMUTH SALICYLATE [Suspect]
     Active Substance: BISMUTH TRISALICYLATE
     Indication: PRODUCT USED FOR UNKNOWN INDICATION
  2. IBUPROFEN. [Suspect]
     Active Substance: IBUPROFEN
     Indication: PRODUCT USED FOR UNKNOWN INDICATION
     Dosage: 2000 MG, UNK
     Route: 048

REACTIONS (9)
  - Toxicity to various agents [Unknown]
  - Abdominal discomfort [Unknown]
  - Tinnitus [Unknown]
  - Tachypnoea [Unknown]
  - Intentional overdose [Unknown]
  - Drug level increased [Unknown]
  - Metabolic acidosis [Unknown]
  - Bezoar [Unknown]
  - Abdominal pain [Unknown]
